FAERS Safety Report 4571879-8 (Version None)
Quarter: 2005Q1

REPORT INFORMATION
  Report Type: 
  Country: None (occurrence: None)
  Receive Date: 20050202
  Receipt Date: 20050202
  Transmission Date: 20050727
  Serious: No
  Sender: FDA-Public Use
  Company Number: None

PATIENT
  Sex: Male

DRUGS (1)
  1. TRAVATAN [Suspect]
     Indication: GLAUCOMA
     Dosage: 1 DROP OU AT BEDTIME

REACTIONS (3)
  - EYE PAIN [None]
  - EYE PRURITUS [None]
  - OCULAR HYPERAEMIA [None]
